FAERS Safety Report 6145064-2 (Version None)
Quarter: 2009Q2

REPORT INFORMATION
  Report Type: 
  Country: None (occurrence: None)
  Receive Date: 20090401
  Receipt Date: 20090401
  Transmission Date: 20091009
  Serious: Yes (Disabling)
  Sender: FDA-Public Use
  Company Number: None

PATIENT
  Age: 58 Year
  Sex: Male
  Weight: 115.6672 kg

DRUGS (1)
  1. SIMVASTATIN [Suspect]
     Indication: HYPERTENSION
     Dosage: 1 TABLET NIGHTLY PO
     Route: 048
     Dates: start: 20090114, end: 20090310

REACTIONS (1)
  - HYPOAESTHESIA [None]
